FAERS Safety Report 25118683 (Version 1)
Quarter: 2025Q1

REPORT INFORMATION
  Report Type: Spontaneous
  Country: ID (occurrence: ID)
  Receive Date: 20250325
  Receipt Date: 20250325
  Transmission Date: 20250409
  Serious: Yes (Hospitalization)
  Sender: MYLAN
  Company Number: ID-MYLANLABS-2025M1025466

PATIENT
  Age: 23 Year
  Sex: Female

DRUGS (10)
  1. PREGABALIN [Suspect]
     Active Substance: PREGABALIN
     Indication: Cancer pain
  2. AMITRIPTYLINE [Suspect]
     Active Substance: AMITRIPTYLINE
     Indication: Cancer pain
  3. FENTANYL [Suspect]
     Active Substance: FENTANYL
     Indication: Cancer pain
     Dosage: 25 MICROGRAM, QH
  4. FENTANYL [Suspect]
     Active Substance: FENTANYL
     Indication: Cancer pain
  5. KETAMINE [Suspect]
     Active Substance: KETAMINE
     Indication: Cancer pain
  6. KETOROLAC [Suspect]
     Active Substance: KETOROLAC TROMETHAMINE
     Indication: Cancer pain
  7. MORPHINE [Suspect]
     Active Substance: MORPHINE
     Indication: Cancer pain
     Dosage: 10 MILLIGRAM, BID
  8. MORPHINE [Suspect]
     Active Substance: MORPHINE
  9. ACETAMINOPHEN [Suspect]
     Active Substance: ACETAMINOPHEN
     Indication: Cancer pain
     Dosage: 500 MILLIGRAM, Q8H, INFUSION
  10. TRAMADOL [Suspect]
     Active Substance: TRAMADOL
     Indication: Cancer pain
     Dosage: 100 MILLIGRAM, Q8H, INFUSION

REACTIONS (1)
  - Drug ineffective [Unknown]
